FAERS Safety Report 15011438 (Version 1)
Quarter: 2018Q2

REPORT INFORMATION
  Report Type: Spontaneous
  Country: US (occurrence: US)
  Receive Date: 20180522
  Receipt Date: 20180522
  Transmission Date: 20180711
  Serious: Yes (Life-Threatening)
  Sender: FDA-Public Use
  Company Number: None

PATIENT
  Age: 55 Year
  Sex: Female
  Weight: 68.04 kg

DRUGS (3)
  1. CELOCOXIB 200MG CAPSULE [Suspect]
     Active Substance: CELECOXIB
     Indication: ARTHRITIS
     Dosage: ?          QUANTITY:1 DF DOSAGE FORM;?
     Dates: start: 20180223, end: 20180427
  2. CELOCOXIB 200MG CAPSULE [Suspect]
     Active Substance: CELECOXIB
     Indication: PAIN
  3. ZYRTEC [Concomitant]
     Active Substance: CETIRIZINE HYDROCHLORIDE

REACTIONS (8)
  - Nausea [None]
  - Diarrhoea [None]
  - Hypersensitivity [None]
  - Headache [None]
  - Dehydration [None]
  - Vomiting [None]
  - Abdominal discomfort [None]
  - Abdominal pain upper [None]
